FAERS Safety Report 17934931 (Version 1)
Quarter: 2020Q2

REPORT INFORMATION
  Report Type: Spontaneous
  Country: US (occurrence: US)
  Receive Date: 20200623
  Receipt Date: 20200623
  Transmission Date: 20200714
  Serious: Yes (Other)
  Sender: FDA-Public Use
  Company Number: None

PATIENT
  Age: 51 Year
  Sex: Female
  Weight: 100.61 kg

DRUGS (2)
  1. AJOVY [Suspect]
     Active Substance: FREMANEZUMAB-VFRM
     Indication: MIGRAINE WITHOUT AURA
     Dates: start: 20200416, end: 20200605
  2. TIZANIDINE - 4MG [Suspect]
     Active Substance: TIZANIDINE
     Indication: CERVICOGENIC HEADACHE
     Dates: start: 20200416

REACTIONS (2)
  - Hepatic enzyme increased [None]
  - Hyperglycaemia [None]

NARRATIVE: CASE EVENT DATE: 20200605
